FAERS Safety Report 18568803 (Version 5)
Quarter: 2021Q2

REPORT INFORMATION
  Report Type: Report from Study
  Country: US (occurrence: US)
  Receive Date: 20201202
  Receipt Date: 20210411
  Transmission Date: 20210717
  Serious: Yes (Other)
  Sender: FDA-Public Use
  Company Number: NVSC2020US316743

PATIENT
  Sex: Female

DRUGS (3)
  1. ENTRESTO [Suspect]
     Active Substance: SACUBITRIL\VALSARTAN
     Indication: PRODUCT USED FOR UNKNOWN INDICATION
     Dosage: 100 MG, BID (49/51 MG)
     Route: 048
     Dates: start: 20200912
  2. METOPROLOL. [Concomitant]
     Active Substance: METOPROLOL
     Dosage: UNK (DOSE REDUCED)
     Route: 065
     Dates: start: 20201121
  3. METOPROLOL. [Concomitant]
     Active Substance: METOPROLOL
     Indication: PRODUCT USED FOR UNKNOWN INDICATION
     Dosage: UNK UNK, UNKNOWN
     Route: 065

REACTIONS (6)
  - Weight increased [Recovering/Resolving]
  - Osteonecrosis [Unknown]
  - Feeling abnormal [Unknown]
  - Throat clearing [Unknown]
  - Hypersensitivity [Unknown]
  - Hypotension [Recovering/Resolving]
